FAERS Safety Report 6975217-2 (Version None)
Quarter: 2010Q3

REPORT INFORMATION
  Report Type: 
  Country: None (occurrence: None)
  Receive Date: 20100910
  Receipt Date: 20090217
  Transmission Date: 20110219
  Serious: No
  Sender: FDA-Public Use
  Company Number: US-WYE-H08252709

PATIENT
  Sex: Female

DRUGS (7)
  1. PRISTIQ [Suspect]
     Indication: DEPRESSION
     Route: 048
     Dates: start: 20090206
  2. PRISTIQ [Suspect]
     Indication: ANXIETY
  3. MICARDIS [Concomitant]
  4. SYNTHROID [Concomitant]
  5. POTASSIUM [Concomitant]
  6. PREVACID [Concomitant]
  7. ARIMIDEX [Concomitant]

REACTIONS (4)
  - DRUG INEFFECTIVE [None]
  - FLATULENCE [None]
  - INSOMNIA [None]
  - NAUSEA [None]
